FAERS Safety Report 9227627 (Version 2)
Quarter: 2013Q2

REPORT INFORMATION
  Report Type: Other
  Country: JP (occurrence: JP)
  Receive Date: 20130412
  Receipt Date: 20130517
  Transmission Date: 20140414
  Serious: Yes (Other)
  Sender: FDA-Public Use
  Company Number: JP-BRISTOL-MYERS SQUIBB COMPANY-18736801

PATIENT
  Age: 74 Year
  Sex: Male

DRUGS (1)
  1. TRIAMCINOLONE ACE INJ [Suspect]

REACTIONS (1)
  - Cytomegalovirus chorioretinitis [Not Recovered/Not Resolved]
